FAERS Safety Report 5089983-7 (Version None)
Quarter: 2006Q3

REPORT INFORMATION
  Report Type: 
  Country: None (occurrence: None)
  Receive Date: 20060823
  Receipt Date: 20060810
  Transmission Date: 20061208
  Serious: Yes (Death)
  Sender: FDA-Public Use
  Company Number: 2005172597

PATIENT
  Age: 49 Year
  Sex: Female
  Weight: 86.1834 kg

DRUGS (5)
  1. NEURONTIN [Suspect]
     Indication: NEUROPATHY PERIPHERAL
     Dates: start: 20021001
  2. NEURONTIN [Suspect]
     Indication: RESTLESS LEGS SYNDROME
     Dates: start: 20021001
  3. PERCOCET [Suspect]
     Indication: ILL-DEFINED DISORDER
  4. ANBIEN (ZOLPIDEM TARTRATE) [Suspect]
     Indication: ILL-DEFINED DISORDER
     Dates: start: 19991001
  5. BOTULINUM TOXIN TYPE A (BOTULINUM TOXIN TYPE A) [Concomitant]

REACTIONS (11)
  - CARDIAC DISORDER [None]
  - COMPLETED SUICIDE [None]
  - DEPRESSED MOOD [None]
  - DRUG INEFFECTIVE [None]
  - DRUG TOXICITY [None]
  - HEPATIC CONGESTION [None]
  - MYOCARDIAL FIBROSIS [None]
  - PANCREATIC NECROSIS [None]
  - PULMONARY CONGESTION [None]
  - RENAL NECROSIS [None]
  - TOXICOLOGIC TEST ABNORMAL [None]
